FAERS Safety Report 21850721 (Version 1)
Quarter: 2023Q1

REPORT INFORMATION
  Report Type: Spontaneous
  Country: BR (occurrence: BR)
  Receive Date: 20230111
  Receipt Date: 20230111
  Transmission Date: 20230417
  Serious: Yes (Hospitalization, Other)
  Sender: FDA-Public Use
  Company Number: BR-009507513-2301BRA001850

PATIENT
  Sex: Female
  Weight: 82 kg

DRUGS (3)
  1. TEMODAL [Suspect]
     Active Substance: TEMOZOLOMIDE
     Indication: Lung cancer metastatic
     Dosage: 4 TABLES OF 20MG + 2 TABLETS OF 5 MG (90MG D1 TO D7)
     Route: 048
     Dates: start: 202102
  2. TEMODAL [Suspect]
     Active Substance: TEMOZOLOMIDE
     Dosage: 4 TABLES OF 20MG + 2 TABLETS OF 5 MG (90MG D1 TO D7)
     Route: 048
     Dates: start: 201202
  3. LYNPARZA [Concomitant]
     Active Substance: OLAPARIB
     Dosage: 3 TABLETS A DAY, FOR 7 DAYS
     Route: 048

REACTIONS (6)
  - Malignant neoplasm progression [Unknown]
  - Radiotherapy [Unknown]
  - Product use in unapproved indication [Unknown]
  - Incorrect dose administered [Unknown]
  - Product prescribing issue [Unknown]
  - Product use issue [Unknown]

NARRATIVE: CASE EVENT DATE: 20230101
